FAERS Safety Report 9225774 (Version 2)
Quarter: 2014Q1

REPORT INFORMATION
  Report Type: Report from Study
  Country: BR (occurrence: BR)
  Receive Date: 20130411
  Receipt Date: 20140304
  Transmission Date: 20141002
  Serious: Yes (Other)
  Sender: FDA-Public Use
  Company Number: BR-ACTELION-A-CH2013-81671

PATIENT
  Age: 1 Day
  Sex: Female
  Weight: 2.63 kg

DRUGS (5)
  1. PLACEBO [Suspect]
     Indication: EXPOSURE DURING PREGNANCY
     Dosage: 125 MG, BID
     Route: 064
     Dates: start: 20091105, end: 20120823
  2. SILDENAFIL [Concomitant]
     Indication: EXPOSURE DURING PREGNANCY
     Dosage: 20 MG, TID
     Route: 064
     Dates: start: 20100916
  3. WARFARIN [Concomitant]
     Dosage: UNK
     Route: 064
     Dates: start: 20100913
  4. CHLOROQUINE [Concomitant]
     Dosage: UNK
     Route: 064
     Dates: start: 20100913
  5. UREA [Concomitant]
     Dosage: UNK
     Route: 064
     Dates: start: 201205

REACTIONS (4)
  - Premature baby [Unknown]
  - Bradypnoea [Unknown]
  - Jaundice [Unknown]
  - Feeding disorder neonatal [Unknown]
